FAERS Safety Report 7051351-6 (Version None)
Quarter: 2010Q4

REPORT INFORMATION
  Report Type: 
  Country: None (occurrence: None)
  Receive Date: 20101018
  Receipt Date: 20101018
  Transmission Date: 20110411
  Serious: Yes (Other)
  Sender: FDA-Public Use
  Company Number: None

PATIENT
  Age: 59 Year
  Sex: Female
  Weight: 61.2356 kg

DRUGS (2)
  1. AMBIEN CR [Suspect]
     Indication: INSOMNIA
     Dosage: NIGHTLY MID TO END OF SEPTEMBER
  2. ZOLPIDEM TARTRATE [Suspect]
     Indication: INSOMNIA
     Dosage: NIGHTLY MID TO END OF SEPTEMBER

REACTIONS (2)
  - DEPRESSION [None]
  - SUICIDAL IDEATION [None]
